FAERS Safety Report 18653848 (Version 1)
Quarter: 2020Q4

REPORT INFORMATION
  Report Type: Spontaneous
  Country: US (occurrence: US)
  Receive Date: 20201222
  Receipt Date: 20201222
  Transmission Date: 20210114
  Serious: Yes (Hospitalization, Disabling)
  Sender: FDA-Public Use
  Company Number: None

PATIENT
  Age: 57 Year
  Sex: Female
  Weight: 67.95 kg

DRUGS (7)
  1. ESTER-C [Concomitant]
  2. ATORVASTATIN [Concomitant]
     Active Substance: ATORVASTATIN
  3. CLONIDINE. [Concomitant]
     Active Substance: CLONIDINE
  4. LORATADINE. [Concomitant]
     Active Substance: LORATADINE
  5. LOSARTAN/HCTZ [Concomitant]
     Active Substance: HYDROCHLOROTHIAZIDE\LOSARTAN
  6. METFORMIN HRDROCHLORIDE TABLETS 500MG [Suspect]
     Active Substance: METFORMIN HYDROCHLORIDE
     Indication: DIABETES MELLITUS
     Dosage: ?          QUANTITY:1 TABLET(S);OTHER ROUTE:BY MOUTH?
     Dates: start: 20130615, end: 20200620
  7. MECLIZINE [Concomitant]
     Active Substance: MECLIZINE HYDROCHLORIDE

REACTIONS (2)
  - Recalled product administered [None]
  - Brain neoplasm [None]

NARRATIVE: CASE EVENT DATE: 20170709
